FAERS Safety Report 8725612 (Version 2)
Quarter: 2012Q4

REPORT INFORMATION
  Report Type: 
  Country: US (occurrence: US)
  Receive Date: 20120815
  Receipt Date: 20120828
  Transmission Date: 20130627
  Serious: Yes (Other)
  Sender: FDA-Public Use
  Company Number: CHPA2012US017625

PATIENT
  Age: 64 Year
  Sex: Female

DRUGS (1)
  1. CHLORZOXAZONE [Suspect]
     Indication: PAIN
     Dosage: A PINCH, PRN
     Route: 061

REACTIONS (3)
  - Bone disorder [Unknown]
  - Gait disturbance [Unknown]
  - Product quality issue [None]
